FAERS Safety Report 20053339 (Version 1)
Quarter: 2021Q4

REPORT INFORMATION
  Report Type: Spontaneous
  Country: US (occurrence: None)
  Receive Date: 20211109
  Receipt Date: 20211109
  Transmission Date: 20220303
  Serious: Yes (Death)
  Sender: FDA-Public Use
  Company Number: None

PATIENT
  Age: 63 Year
  Sex: Female

DRUGS (1)
  1. TEMOZOLOMIDE [Suspect]
     Active Substance: TEMOZOLOMIDE
     Dosage: FREQUENCY : DAILY;?FOR 5 DAYS
     Route: 048
     Dates: start: 202108

REACTIONS (1)
  - Death [None]

NARRATIVE: CASE EVENT DATE: 20211109
